FAERS Safety Report 5418402-3 (Version None)
Quarter: 2007Q3

REPORT INFORMATION
  Report Type: 
  Country: None (occurrence: None)
  Receive Date: 20070817
  Receipt Date: 20070807
  Transmission Date: 20080115
  Serious: Yes (Hospitalization)
  Sender: FDA-Public Use
  Company Number: HU-GENENTECH-245776

PATIENT
  Sex: Female
  Weight: 98.5 kg

DRUGS (3)
  1. RITUXIMAB [Suspect]
     Indication: CHRONIC LYMPHOCYTIC LEUKAEMIA
     Dosage: 810 MG, UNK
     Route: 042
     Dates: start: 20050418
  2. FLUDARABINE [Suspect]
     Indication: CHRONIC LYMPHOCYTIC LEUKAEMIA
     Dosage: 50 MG, UNK
     Route: 042
     Dates: start: 20050419
  3. CYCLOPHOSPHAMIDE [Suspect]
     Indication: CHRONIC LYMPHOCYTIC LEUKAEMIA
     Dosage: 500 MG, UNK
     Route: 042
     Dates: start: 20050419

REACTIONS (1)
  - THYROID CANCER [None]
